FAERS Safety Report 5201358-6 (Version None)
Quarter: 2007Q1

REPORT INFORMATION
  Report Type: 
  Country: None (occurrence: None)
  Receive Date: 20070108
  Receipt Date: 20061226
  Transmission Date: 20070707
  Serious: Yes (Hospitalization)
  Sender: FDA-Public Use
  Company Number: US-NOVOPROD-259527

PATIENT
  Age: 78 Year
  Sex: Male
  Weight: 102.4 kg

DRUGS (8)
  1. NOVOLOG [Suspect]
  2. ASPIRIN [Concomitant]
     Indication: PROPHYLAXIS
     Dosage: 81 MG, QD
     Route: 048
     Dates: end: 20060828
  3. ASPIRIN [Concomitant]
     Dosage: 325 MG, QD
     Route: 048
     Dates: start: 20060828
  4. COREG [Concomitant]
     Indication: HYPERTENSION
     Dosage: 25 MG, QD
     Route: 048
  5. LIPITOR [Concomitant]
     Indication: BLOOD CHOLESTEROL INCREASED
     Dosage: 10 MG, QD
     Route: 048
  6. SYNTHROID [Concomitant]
     Indication: HYPOTHYROIDISM
     Dosage: 1 TAB, UNK
     Route: 048
  7. LISINOPRIL [Concomitant]
     Indication: HYPERTENSION
     Dosage: 10 MG, UNK
     Route: 048
  8. OXYCODONE HCL [Concomitant]
     Indication: PELVIC FRACTURE
     Dosage: UNK, PRN
     Route: 048

REACTIONS (1)
  - MYOCARDIAL INFARCTION [None]
